FAERS Safety Report 5761727-2 (Version None)
Quarter: 2008Q2

REPORT INFORMATION
  Report Type: 
  Country: None (occurrence: None)
  Receive Date: 20080606
  Receipt Date: 20080526
  Transmission Date: 20081010
  Serious: Yes (Other)
  Sender: FDA-Public Use
  Company Number: US-PFIZER INC-2008044677

PATIENT
  Sex: Female
  Weight: 56.818 kg

DRUGS (1)
  1. CHANTIX [Suspect]
     Indication: SMOKING CESSATION THERAPY
     Dosage: TEXT:0.5MG QD EVERY DAY TDD:0.5MG

REACTIONS (6)
  - AGITATION [None]
  - FRUSTRATION [None]
  - HYPOGLYCAEMIA [None]
  - INSOMNIA [None]
  - INTESTINAL FUNCTIONAL DISORDER [None]
  - MANIA [None]
